FAERS Safety Report 4668672-4 (Version None)
Quarter: 2005Q2

REPORT INFORMATION
  Report Type: 
  Country: None (occurrence: None)
  Receive Date: 20050523
  Receipt Date: 20050224
  Transmission Date: 20051028
  Serious: Yes (Other)
  Sender: FDA-Public Use
  Company Number: PHEH2005US02465

PATIENT
  Sex: Female
  Weight: 79 kg

DRUGS (1)
  1. ZOLEDRONATE [Suspect]
     Indication: METASTASES TO BONE
     Dates: start: 20030103, end: 20041006

REACTIONS (4)
  - IMPAIRED HEALING [None]
  - OSTEOMYELITIS [None]
  - PYOGENIC GRANULOMA [None]
  - TOOTH EXTRACTION [None]
